FAERS Safety Report 5006977-8 (Version None)
Quarter: 2006Q2

REPORT INFORMATION
  Report Type: 
  Country: None (occurrence: None)
  Receive Date: 20060517
  Receipt Date: 20060504
  Transmission Date: 20061013
  Serious: Yes (Hospitalization)
  Sender: FDA-Public Use
  Company Number: 2006059916

PATIENT
  Age: 40 Year
  Sex: Female

DRUGS (5)
  1. CORTEF [Suspect]
     Indication: ADRENOCORTICAL INSUFFICIENCY CHRONIC
     Dosage: 25 MG (25 MG, DAILY INTERVAL: EVERYDAY)
     Dates: start: 20041101
  2. GENOTROPIN [Suspect]
     Indication: HYPOPITUITARISM
     Dosage: 1 MG (1 MG, DAILY), SUBCUTANEOUS
     Route: 058
     Dates: start: 20040401
  3. ESTROGENS SOL/INJ [Concomitant]
  4. THYROID TAB [Concomitant]
  5. FLORINEF [Concomitant]

REACTIONS (8)
  - ABDOMINAL DISTENSION [None]
  - ADRENOCORTICAL INSUFFICIENCY ACUTE [None]
  - ARTHRALGIA [None]
  - BLOOD CORTISOL DECREASED [None]
  - DRUG INTERACTION [None]
  - DRUG INTOLERANCE [None]
  - JOINT SWELLING [None]
  - PAIN [None]
